FAERS Safety Report 9474696 (Version 1)
Quarter: 2013Q3

REPORT INFORMATION
  Report Type: Spontaneous
  Country: BR (occurrence: BR)
  Receive Date: 20130823
  Receipt Date: 20130823
  Transmission Date: 20140515
  Serious: Yes (Hospitalization)
  Sender: FDA-Public Use
  Company Number: BR-ASTRAZENECA-2013SE64360

PATIENT
  Age: 41 Year
  Sex: Male
  Weight: 77 kg

DRUGS (3)
  1. CRESTOR [Suspect]
     Indication: BLOOD CHOLESTEROL INCREASED
     Dosage: DAILY
     Route: 048
     Dates: start: 201305
  2. BRILINTA [Suspect]
     Indication: CORONARY ARTERY OCCLUSION
     Dosage: TWO TIMES A DAY
     Route: 048
     Dates: start: 201308
  3. ZYLORIC [Concomitant]
     Indication: BLOOD URIC ACID INCREASED

REACTIONS (2)
  - Coronary artery occlusion [Recovered/Resolved]
  - Off label use [Not Recovered/Not Resolved]
